FAERS Safety Report 6309160-9 (Version None)
Quarter: 2009Q3

REPORT INFORMATION
  Report Type: 
  Country: None (occurrence: None)
  Receive Date: 20090814
  Receipt Date: 20090514
  Transmission Date: 20100115
  Serious: No
  Sender: FDA-Public Use
  Company Number: A0785389A

PATIENT
  Sex: Male
  Weight: 109.1 kg

DRUGS (1)
  1. COREG CR [Suspect]
     Dosage: 10MG UNKNOWN
     Route: 048

REACTIONS (2)
  - DRUG INEFFECTIVE [None]
  - DYSPNOEA [None]
